FAERS Safety Report 23081329 (Version 2)
Quarter: 2023Q4

REPORT INFORMATION
  Report Type: Spontaneous
  Country: DE (occurrence: DE)
  Receive Date: 20231018
  Receipt Date: 20231120
  Transmission Date: 20240109
  Serious: Yes (Other)
  Sender: FDA-Public Use
  Company Number: DE-SANDOZ-SDZ2023DE043232

PATIENT
  Sex: Female

DRUGS (5)
  1. SALBUHEXAL [Suspect]
     Active Substance: ALBUTEROL
     Indication: Asthma
     Dosage: METERED AEROSOLSPRAY, 3YEARS AGO
     Route: 065
  2. FOSTER [Concomitant]
     Active Substance: BECLOMETHASONE\FORMOTEROL
     Indication: Product used for unknown indication
     Dosage: UNK
     Route: 065
  3. MIRTAZAPINE [Concomitant]
     Active Substance: MIRTAZAPINE
     Indication: Product used for unknown indication
     Route: 065
  4. MIRTAZAPINE [Concomitant]
     Active Substance: MIRTAZAPINE
     Indication: Product used for unknown indication
     Route: 065
  5. PREGABALIN [Concomitant]
     Active Substance: PREGABALIN
     Indication: Product used for unknown indication
     Route: 065

REACTIONS (2)
  - Blood glucose increased [Unknown]
  - Dysphonia [Unknown]

NARRATIVE: CASE EVENT DATE: 20230101
